FAERS Safety Report 7509435-1 (Version None)
Quarter: 2011Q2

REPORT INFORMATION
  Report Type: 
  Country: None (occurrence: None)
  Receive Date: 20110527
  Receipt Date: 20110518
  Transmission Date: 20111010
  Serious: Yes (Hospitalization, Other)
  Sender: FDA-Public Use
  Company Number: CA-ROCHE-745730

PATIENT
  Sex: Female
  Weight: 110.7 kg

DRUGS (20)
  1. CALCIUM CARBONATE [Concomitant]
     Route: 048
  2. RAMIPRIL [Concomitant]
     Indication: BLOOD PRESSURE
  3. VITAMIN B-12 [Concomitant]
  4. VITAMIN D [Concomitant]
  5. TOCILIZUMAB [Suspect]
     Route: 042
     Dates: start: 20101208, end: 20110328
  6. WARFARIN SODIUM [Concomitant]
  7. RAMIPRIL [Concomitant]
  8. EDECRIN [Concomitant]
  9. METHOTREXATE [Concomitant]
     Route: 058
     Dates: start: 20001220
  10. SYNTHROID [Concomitant]
  11. AGGRENOX [Concomitant]
     Route: 048
  12. VERAPAMIL [Concomitant]
  13. TOCILIZUMAB [Suspect]
     Indication: RHEUMATOID ARTHRITIS
     Dosage: FORM: INFUSION
     Route: 042
     Dates: start: 20100809
  14. FOSAMAX [Concomitant]
     Indication: OSTEOPOROSIS
     Route: 048
     Dates: start: 20020618
  15. FERROUS SULFATE TAB [Concomitant]
  16. ALENDRONATE SODIUM [Concomitant]
     Dosage: DRUG: ALENDRONATE
  17. PREDNISONE [Concomitant]
     Dates: start: 20000101
  18. PREDNISONE [Concomitant]
     Dates: start: 20110225
  19. FOLIC ACID [Concomitant]
  20. PREDNISONE [Concomitant]
     Dosage: GRADUALLY DECREASED TO 17 MG ID

REACTIONS (17)
  - JOINT STIFFNESS [None]
  - NASOPHARYNGITIS [None]
  - MIDDLE EAR EFFUSION [None]
  - ORAL HERPES [None]
  - BLOOD BLISTER [None]
  - DRUG INEFFECTIVE [None]
  - ARTHRALGIA [None]
  - BLOOD CHOLESTEROL INCREASED [None]
  - NASAL CONGESTION [None]
  - DYSPHONIA [None]
  - SCLERAL DISCOLOURATION [None]
  - RHEUMATOID VASCULITIS [None]
  - ATRIAL FIBRILLATION [None]
  - COUGH [None]
  - RHEUMATOID ARTHRITIS [None]
  - JOINT SWELLING [None]
  - DYSPNOEA [None]
